FAERS Safety Report 8193253-8 (Version None)
Quarter: 2012Q1

REPORT INFORMATION
  Report Type: 
  Country: None (occurrence: None)
  Receive Date: 20120308
  Receipt Date: 20120305
  Transmission Date: 20120608
  Serious: Yes (Life-Threatening, Hospitalization, Other)
  Sender: FDA-Public Use
  Company Number: JP-JNJFOC-20110205814

PATIENT
  Sex: Female
  Weight: 53 kg

DRUGS (38)
  1. DOXORUBICIN HCL [Suspect]
     Dosage: CYCLE 6
     Route: 042
     Dates: start: 20100421, end: 20100421
  2. FENTANYL-100 [Concomitant]
     Route: 062
     Dates: start: 20101222, end: 20110104
  3. CATLEP [Concomitant]
     Indication: BACK PAIN
     Route: 061
     Dates: end: 20101121
  4. SEISHOKU [Concomitant]
     Route: 042
  5. DOXORUBICIN HCL [Suspect]
     Indication: OVARIAN CANCER RECURRENT
     Dosage: CYCLE 9
     Route: 042
     Dates: start: 20100915, end: 20100915
  6. DOXORUBICIN HCL [Suspect]
     Dosage: CYCLE 2
     Route: 042
     Dates: start: 20091125, end: 20091125
  7. LENDORMIN [Concomitant]
     Indication: INSOMNIA
     Route: 048
  8. PURSENNID [Concomitant]
     Indication: CONSTIPATION
     Route: 048
     Dates: end: 20101121
  9. DIBASIC POTASSIUM PHOSPHATE INORGANIC SALTS COMBINED DRUG [Concomitant]
     Indication: DRY MOUTH
     Dosage: 50 G
     Route: 049
     Dates: start: 20101221, end: 20101228
  10. DOXORUBICIN HCL [Suspect]
     Dosage: CYCLE 7
     Route: 042
     Dates: start: 20100616, end: 20100616
  11. DOXORUBICIN HCL [Suspect]
     Dosage: CYCLE 8
     Route: 042
     Dates: start: 20100728, end: 20100728
  12. DOXORUBICIN HCL [Suspect]
     Dosage: CYCLE 3
     Route: 042
     Dates: start: 20100106, end: 20100106
  13. MOHRUS TAPE [Concomitant]
     Indication: BACK PAIN
     Route: 062
  14. SELBEX [Concomitant]
     Route: 048
     Dates: start: 20100630, end: 20101121
  15. HEPARIN [Concomitant]
     Indication: PROPHYLAXIS
     Route: 061
     Dates: start: 20101204, end: 20101227
  16. ELNEOPA NO 1 [Concomitant]
     Route: 042
     Dates: start: 20101215, end: 20101215
  17. DOXORUBICIN HCL [Suspect]
     Dosage: CYCLE 4
     Route: 042
     Dates: start: 20100210, end: 20100210
  18. PRIMPERAN TAB [Concomitant]
     Route: 048
     Dates: end: 20101121
  19. DECADRON [Concomitant]
     Indication: PROPHYLAXIS
     Route: 048
     Dates: start: 20100728, end: 20100729
  20. ANPEC (MORPHINE HYDROCHLORIDE) [Concomitant]
     Route: 054
     Dates: start: 20101220, end: 20110106
  21. ANPEC (MORPHINE HYDROCHLORIDE) [Concomitant]
     Indication: PAIN
     Route: 054
     Dates: start: 20110107
  22. PROCHLORPERAZINE [Concomitant]
     Indication: NAUSEA
     Dosage: 3 DF
     Route: 048
     Dates: start: 20110131, end: 20110216
  23. EMEND [Concomitant]
     Indication: PROPHYLAXIS
     Route: 048
     Dates: start: 20100728, end: 20100728
  24. CELECOXIB [Concomitant]
     Indication: PRODUCT USED FOR UNKNOWN INDICATION
     Dosage: 2 DF
     Route: 048
     Dates: start: 20110130
  25. DOXORUBICIN HCL [Suspect]
     Dosage: CYCLE 5
     Route: 042
     Dates: start: 20100317, end: 20100317
  26. ANPEC (MORPHINE HYDROCHLORIDE) [Concomitant]
     Indication: PRODUCT USED FOR UNKNOWN INDICATION
     Route: 054
     Dates: start: 20110107
  27. CEFAZOLIN SODIUM [Concomitant]
     Indication: PRODUCT USED FOR UNKNOWN INDICATION
     Dosage: 2 DF
     Route: 048
     Dates: start: 20110126
  28. DOXORUBICIN HCL [Suspect]
     Dosage: CYCLE 10
     Route: 042
     Dates: start: 20101108, end: 20101108
  29. MAGMITT [Concomitant]
     Indication: CONSTIPATION
     Route: 048
     Dates: end: 20101121
  30. PRIMPERAN TAB [Concomitant]
     Indication: NAUSEA
     Route: 048
     Dates: start: 20100806, end: 20100806
  31. DOXORUBICIN HCL [Suspect]
     Dosage: CYCLE 1
     Route: 042
     Dates: start: 20091023, end: 20091023
  32. FENTANYL-100 [Concomitant]
     Indication: PRODUCT USED FOR UNKNOWN INDICATION
     Route: 062
     Dates: start: 20101228, end: 20110106
  33. LOXONIN [Concomitant]
     Route: 048
     Dates: start: 20100630, end: 20101121
  34. EMEND [Concomitant]
     Route: 048
     Dates: start: 20100729, end: 20100730
  35. ISODINE GARGLE [Concomitant]
     Indication: STOMATITIS
     Dosage: 10.0 DF
     Route: 049
     Dates: start: 20101213, end: 20101220
  36. ANPEC (MORPHINE HYDROCHLORIDE) [Concomitant]
     Route: 054
     Dates: start: 20101220, end: 20110106
  37. ELNEOPA NO 1 [Concomitant]
     Route: 042
     Dates: start: 20101216, end: 20101220
  38. ALL OTHER THERAPEUTIC DRUGS [Concomitant]
     Route: 042
     Dates: start: 20101220, end: 20101224

REACTIONS (4)
  - SEPSIS [None]
  - NEUTROPENIA [None]
  - INTESTINAL OBSTRUCTION [None]
  - SEPTIC SHOCK [None]
